FAERS Safety Report 15222117 (Version 1)
Quarter: 2018Q3

REPORT INFORMATION
  Report Type: Spontaneous
  Country: US (occurrence: US)
  Receive Date: 20180731
  Receipt Date: 20180731
  Transmission Date: 20181010
  Serious: No
  Sender: FDA-Public Use
  Company Number: US-BAYER-2018-136544

PATIENT
  Sex: Female

DRUGS (6)
  1. ALEVE [Suspect]
     Active Substance: NAPROXEN SODIUM
     Dosage: 1 DF, PRN
     Route: 048
     Dates: start: 201807
  2. METHOTREXATE. [Concomitant]
     Active Substance: METHOTREXATE
     Dosage: UNK
  3. BAYER LOW DOSE [Concomitant]
     Active Substance: ASPIRIN
     Dosage: 1 DF, QD
     Route: 048
  4. TYROSINE [Concomitant]
     Active Substance: TYROSINE
  5. FOLIC ACID. [Concomitant]
     Active Substance: FOLIC ACID
  6. BAYER WOMENS [Concomitant]
     Active Substance: ASPIRIN\CALCIUM CARBONATE
     Dosage: 1 DF, QD
     Route: 048

REACTIONS (4)
  - Product prescribing issue [Unknown]
  - Off label use [Unknown]
  - Dizziness [Unknown]
  - Expired product administered [Unknown]

NARRATIVE: CASE EVENT DATE: 201807
